FAERS Safety Report 10513344 (Version 4)
Quarter: 2014Q4

REPORT INFORMATION
  Report Type: Spontaneous
  Country: GB (occurrence: GB)
  Receive Date: 20141013
  Receipt Date: 20141209
  Transmission Date: 20150528
  Serious: Yes (Death)
  Sender: FDA-Public Use
  Company Number: GB-TEVA-513149ISR

PATIENT
  Age: 67 Year
  Sex: Male

DRUGS (5)
  1. DIPYRIDAMOLE. [Concomitant]
     Active Substance: DIPYRIDAMOLE
     Dosage: 200 MILLIGRAM DAILY;
     Route: 048
     Dates: start: 2009
  2. SIMVASTATIN. [Concomitant]
     Active Substance: SIMVASTATIN
     Dosage: 40 MILLIGRAM DAILY;
     Route: 048
     Dates: start: 2009
  3. CITALOPRAM [Suspect]
     Active Substance: CITALOPRAM HYDROBROMIDE
     Indication: ANXIETY
     Dosage: 20 MILLIGRAM DAILY; 20 MG ONCE DAILY
     Route: 048
     Dates: start: 20140407, end: 20140409
  4. ASPIRIN. [Concomitant]
     Active Substance: ASPIRIN
     Dosage: 75 MILLIGRAM DAILY;
     Route: 048
     Dates: start: 2009
  5. CITALOPRAM [Suspect]
     Active Substance: CITALOPRAM HYDROBROMIDE
     Indication: DEPRESSION

REACTIONS (2)
  - Completed suicide [Fatal]
  - Asphyxia [Fatal]

NARRATIVE: CASE EVENT DATE: 20140410
